FAERS Safety Report 8624171-6 (Version None)
Quarter: 2012Q3

REPORT INFORMATION
  Report Type: 
  Country: None (occurrence: None)
  Receive Date: 20120827
  Receipt Date: 20120821
  Transmission Date: 20120928
  Serious: Yes (Other)
  Sender: FDA-Public Use
  Company Number: CA-JNJFOC-20120519146

PATIENT
  Sex: Female
  Weight: 105 kg

DRUGS (7)
  1. NORVASC [Concomitant]
     Route: 048
  2. REMICADE [Suspect]
     Route: 042
     Dates: start: 20091001
  3. ATENOLOL [Concomitant]
     Route: 048
  4. AVALIDE [Concomitant]
     Route: 065
  5. REMICADE [Suspect]
     Indication: ANKYLOSING SPONDYLITIS
     Route: 042
     Dates: start: 20120523
  6. EFFEXOR [Concomitant]
     Route: 048
  7. BENADRYL [Concomitant]
     Indication: PREMEDICATION
     Route: 048

REACTIONS (2)
  - FLUSHING [None]
  - HYPERTENSION [None]
